FAERS Safety Report 4316166-8 (Version None)
Quarter: 2004Q1

REPORT INFORMATION
  Report Type: 
  Country: None (occurrence: None)
  Receive Date: 20040312
  Receipt Date: 20040302
  Transmission Date: 20041129
  Serious: Yes (Hospitalization, Other)
  Sender: FDA-Public Use
  Company Number: PHHO2004JP03232

PATIENT
  Age: 59 Year
  Sex: Male
  Weight: 69 kg

DRUGS (14)
  1. DIOVAN [Suspect]
     Indication: HYPERTENSION
     Dosage: 40 MG, QD
     Route: 048
     Dates: start: 20030214
  2. DORNER [Suspect]
     Indication: CEREBRAL INFARCTION
     Dosage: 80 UG, UNK
     Route: 048
     Dates: start: 20021213
  3. PANALDINE [Suspect]
     Indication: CEREBRAL INFARCTION
     Dosage: 200 MG, UNK
     Route: 048
     Dates: start: 20020722
  4. PURSENNID [Concomitant]
     Indication: CONSTIPATION
     Dosage: 24 MG, UNK
     Route: 048
     Dates: start: 20030613
  5. GLUCOBAY [Concomitant]
     Indication: DIABETES MELLITUS
     Dosage: 150 MG, UNK
     Route: 048
     Dates: start: 20030110, end: 20030313
  6. JUVELA [Concomitant]
     Indication: CEREBRAL INFARCTION
     Dosage: 100 MG, UNK
     Dates: start: 20021213
  7. MECOBALAMIN [Concomitant]
     Indication: NEUROPATHY PERIPHERAL
     Dosage: 1.5 MG, UNK
     Route: 048
     Dates: start: 20030807
  8. KALLIKREIN [Concomitant]
     Dosage: 30 IU, UNK
     Route: 048
     Dates: start: 20030807
  9. ADALAT [Concomitant]
     Indication: HYPERTENSION
     Dosage: 10 MG, UNK
     Route: 048
     Dates: start: 20031108
  10. HUMACART-N [Concomitant]
     Indication: DIABETES MELLITUS
     Dosage: 20 IU, UNK
     Route: 058
     Dates: start: 20030131
  11. HUMACART-N [Concomitant]
     Dosage: 22 IU, UNK
     Route: 058
  12. HUMACART-N [Concomitant]
     Dosage: 28 IU, UNK
     Route: 058
  13. HUMACART-N [Concomitant]
     Dosage: 30 IU, UNK
     Route: 058
  14. HUMACART-N [Concomitant]
     Dosage: 32 IU, UNK
     Route: 058

REACTIONS (8)
  - CELLULITIS [None]
  - CONDITION AGGRAVATED [None]
  - CONSTIPATION [None]
  - DIABETIC RETINOPATHY [None]
  - RASH [None]
  - RHINITIS [None]
  - SEBORRHOEIC KERATOSIS [None]
  - ULCER [None]
